FAERS Safety Report 10232037 (Version 2)
Quarter: 2014Q2

REPORT INFORMATION
  Report Type: Spontaneous
  Country: US (occurrence: US)
  Receive Date: 20140612
  Receipt Date: 20140612
  Transmission Date: 20141212
  Serious: Yes (Other)
  Sender: FDA-Public Use
  Company Number: US-BRISTOL-MYERS SQUIBB COMPANY-20691291

PATIENT
  Age: 42 Year
  Sex: Male

DRUGS (5)
  1. ONGLYZA TABS [Suspect]
     Indication: DIABETES MELLITUS INADEQUATE CONTROL
     Dates: start: 20140425, end: 20140502
  2. LEVEMIR [Suspect]
     Dosage: 1DF: 22UGD
  3. NOVOLOG [Suspect]
     Dosage: 1DF: 18U BASELINE
  4. GLUMETZA [Suspect]
  5. LYRICA [Concomitant]

REACTIONS (5)
  - Diabetic neuropathy [Not Recovered/Not Resolved]
  - Diabetes mellitus inadequate control [Unknown]
  - Abdominal pain upper [Recovered/Resolved]
  - Influenza [Unknown]
  - Diarrhoea [Not Recovered/Not Resolved]
